FAERS Safety Report 4337105-X (Version None)
Quarter: 2004Q1

REPORT INFORMATION
  Report Type: 
  Country: None (occurrence: None)
  Receive Date: 20040329
  Receipt Date: 20040115
  Transmission Date: 20041129
  Serious: No
  Sender: FDA-Public Use
  Company Number: USA040156696

PATIENT
  Age: 6 Year
  Sex: Male

DRUGS (1)
  1. STRATTERA [Suspect]
     Indication: DISTURBANCE IN ATTENTION
     Dosage: 18 MG/DAY
     Route: 048
     Dates: start: 20040113

REACTIONS (3)
  - CONVERSION DISORDER [None]
  - CRYING [None]
  - HEADACHE [None]
